FAERS Safety Report 4409953-9 (Version None)
Quarter: 2004Q3

REPORT INFORMATION
  Report Type: 
  Country: None (occurrence: None)
  Receive Date: 20040726
  Receipt Date: 20040712
  Transmission Date: 20050211
  Serious: Yes (Other)
  Sender: FDA-Public Use
  Company Number: 2004223529GB

PATIENT
  Age: 66 Year
  Sex: Female
  Weight: 65.4 kg

DRUGS (10)
  1. BEXTRA [Suspect]
     Indication: OSTEOARTHRITIS
     Dosage: 10 MG, QD, ORAL
     Route: 048
     Dates: start: 20040603, end: 20040613
  2. ANASTROZOLE [Concomitant]
  3. BECLOMETHASONE DIPROPIONATE (BECLOMETASONE DIPROPIONATE) [Concomitant]
  4. CO-CODAMOL [Concomitant]
  5. DIETHYLAMINE SALICYLATE (DIETHYLAMINE SALICYLATE) [Concomitant]
  6. FRUSEMIDE [Concomitant]
  7. IPATROPIUM BROMIDE [Concomitant]
  8. RAMIPRIL [Concomitant]
  9. SALBUTAMOL (SALBUTAMOL) [Concomitant]
  10. SENNA (SENNA) [Concomitant]

REACTIONS (5)
  - ABDOMINAL PAIN LOWER [None]
  - DYSPEPSIA [None]
  - HEADACHE [None]
  - MUSCLE CRAMP [None]
  - VISUAL DISTURBANCE [None]
